FAERS Safety Report 6500148-1 (Version None)
Quarter: 2009Q4

REPORT INFORMATION
  Report Type: 
  Country: None (occurrence: None)
  Receive Date: 20091216
  Receipt Date: 20091201
  Transmission Date: 20100525
  Serious: Yes (Hospitalization)
  Sender: FDA-Public Use
  Company Number: US-ASTRAZENECA-2009SE29682

PATIENT
  Age: 84 Year
  Sex: Female
  Weight: 71.7 kg

DRUGS (2)
  1. ATACAND HCT [Suspect]
     Indication: HYPERTENSION
     Dosage: 16-12.5 MG TOTAL DAILY DOSE, BID
     Route: 048
     Dates: start: 20091117
  2. METFORMIN [Concomitant]

REACTIONS (2)
  - HYPERTENSION [None]
  - URINE ODOUR ABNORMAL [None]
